FAERS Safety Report 9881953 (Version 2)
Quarter: 2014Q1

REPORT INFORMATION
  Report Type: Spontaneous
  Country: US (occurrence: US)
  Receive Date: 20140207
  Receipt Date: 20140207
  Transmission Date: 20141002
  Serious: Yes (Other)
  Sender: FDA-Public Use
  Company Number: PHEH2011US02130

PATIENT
  Age: 50 Year
  Sex: Female

DRUGS (8)
  1. SANDOSTATIN (OCTREOTIDE ACETATE) [Suspect]
     Indication: CARCINOID SYNDROME
     Dosage: UNK UKN, UNK
     Dates: start: 2007
  2. SANDOSTATIN (OCTREOTIDE ACETATE) [Suspect]
     Indication: DIARRHOEA
     Dosage: UNK UKN, UNK
  3. SANDOSTATIN (OCTREOTIDE ACETATE) [Suspect]
     Dosage: UNK UKN, UNK
  4. SANDOSTATIN (OCTREOTIDE ACETATE) [Suspect]
     Dosage: UNK UKN, UNK
  5. SANDOSTATIN (OCTREOTIDE ACETATE) [Suspect]
     Dosage: 1000 UG/ML, UNK
  6. OCTREOTIDE [Suspect]
     Dosage: UNK UKN, UNK
  7. SANDOSTATIN LAR DEPOT [Suspect]
     Indication: CARCINOID SYNDROME
     Dosage: UNK UKN, UNK
     Dates: start: 2003
  8. NOVOCAIN [Suspect]
     Dosage: UNK UKN, UNK

REACTIONS (24)
  - Myocardial infarction [Recovered/Resolved]
  - Spinal cord paralysis [Recovered/Resolved]
  - Stress [Unknown]
  - Neuropathy peripheral [Recovered/Resolved]
  - Product quality issue [Unknown]
  - Pain [Unknown]
  - Post procedural complication [Unknown]
  - Flushing [Unknown]
  - Carcinoembryonic antigen increased [Unknown]
  - Wrong technique in drug usage process [Unknown]
  - Atrophy [Unknown]
  - Hypoaesthesia [Recovered/Resolved]
  - Psychomotor hyperactivity [Unknown]
  - Injection site mass [Unknown]
  - General physical condition abnormal [Recovered/Resolved]
  - Generalised erythema [Unknown]
  - Blood pressure decreased [Unknown]
  - Malaise [Unknown]
  - Serum serotonin decreased [Unknown]
  - Abdominal pain [Unknown]
  - Diarrhoea [Unknown]
  - Heart rate increased [Unknown]
  - Drug ineffective [Unknown]
  - Drug dispensing error [Unknown]
